FAERS Safety Report 5326684-1 (Version None)
Quarter: 2007Q2

REPORT INFORMATION
  Report Type: 
  Country: None (occurrence: None)
  Receive Date: 20070516
  Receipt Date: 20070504
  Transmission Date: 20071010
  Serious: Yes (Hospitalization)
  Sender: FDA-Public Use
  Company Number: US-AMGEN-STX220566

PATIENT
  Sex: Male
  Weight: 95.3 kg

DRUGS (7)
  1. ENBREL [Suspect]
     Indication: PSORIASIS
     Route: 058
     Dates: start: 20021209
  2. ALLEGRA [Concomitant]
     Dates: start: 19990101
  3. NAPROXEN [Concomitant]
     Dates: start: 20050101
  4. DARVOCET-N 100 [Concomitant]
     Dates: start: 20040101
  5. CECLOR [Concomitant]
     Dates: start: 20050101
  6. AMBIEN [Concomitant]
     Dates: start: 20040101
  7. FLOMAX [Concomitant]
     Dates: start: 20060101

REACTIONS (2)
  - DIVERTICULITIS [None]
  - INTERVERTEBRAL DISC DEGENERATION [None]
